FAERS Safety Report 17926780 (Version 1)
Quarter: 2020Q2

REPORT INFORMATION
  Report Type: Spontaneous
  Country: US (occurrence: US)
  Receive Date: 20200623
  Receipt Date: 20200623
  Transmission Date: 20200714
  Serious: No
  Sender: FDA-Public Use
  Company Number: US-ITALFARMACO SPA-2086533

PATIENT
  Age: 58 Year
  Sex: Female

DRUGS (6)
  1. TIGLUTIK [Suspect]
     Active Substance: RILUZOLE
     Indication: AMYOTROPHIC LATERAL SCLEROSIS
     Route: 048
     Dates: start: 20191217
  2. RADICAVA [Concomitant]
     Active Substance: EDARAVONE
  3. CITALOPRAM [Concomitant]
     Active Substance: CITALOPRAM HYDROBROMIDE
  4. MULTIVITAMIN [Concomitant]
     Active Substance: VITAMINS
  5. AMBIEN [Concomitant]
     Active Substance: ZOLPIDEM TARTRATE
  6. BACLOFEN. [Concomitant]
     Active Substance: BACLOFEN

REACTIONS (1)
  - Candida infection [Recovered/Resolved]
